FAERS Safety Report 7012163 (Version 4)
Quarter: 2012Q4

REPORT INFORMATION
  Report Type: 
  Country: JP (occurrence: JP)
  Receive Date: 20090605
  Receipt Date: 20120911
  Transmission Date: 20130627
  Serious: Yes (Hospitalization, Other)
  Sender: FDA-Public Use
  Company Number: JP-JNJFOC-20090600295

PATIENT
  Age: 38 Year
  Sex: Male
  Weight: 65 kg

DRUGS (61)
  1. REMICADE [Suspect]
     Indication: BEHCET^S SYNDROME
     Route: 042
     Dates: start: 20090108
  2. REMICADE [Suspect]
     Indication: BEHCET^S SYNDROME
     Route: 042
     Dates: start: 20081106
  3. REMICADE [Suspect]
     Indication: BEHCET^S SYNDROME
     Route: 042
     Dates: start: 20080911
  4. REMICADE [Suspect]
     Indication: BEHCET^S SYNDROME
     Route: 042
     Dates: start: 20080717
  5. REMICADE [Suspect]
     Indication: BEHCET^S SYNDROME
     Route: 042
     Dates: start: 20080522
  6. REMICADE [Suspect]
     Indication: BEHCET^S SYNDROME
     Route: 042
     Dates: start: 20080328
  7. REMICADE [Suspect]
     Indication: BEHCET^S SYNDROME
     Route: 042
     Dates: start: 20080131
  8. REMICADE [Suspect]
     Indication: BEHCET^S SYNDROME
     Route: 042
     Dates: start: 20071203
  9. REMICADE [Suspect]
     Indication: BEHCET^S SYNDROME
     Route: 042
     Dates: start: 20071004
  10. REMICADE [Suspect]
     Indication: BEHCET^S SYNDROME
     Route: 042
     Dates: start: 20070810
  11. REMICADE [Suspect]
     Indication: BEHCET^S SYNDROME
     Route: 042
     Dates: start: 20070625
  12. REMICADE [Suspect]
     Indication: BEHCET^S SYNDROME
     Route: 042
     Dates: start: 20070419
  13. REMICADE [Suspect]
     Indication: BEHCET^S SYNDROME
     Route: 042
     Dates: start: 20090305
  14. REMICADE [Suspect]
     Indication: BEHCET^S SYNDROME
     Route: 042
     Dates: start: 20090430
  15. REMICADE [Suspect]
     Indication: BEHCET^S SYNDROME
     Route: 042
     Dates: start: 20070322
  16. REMICADE [Suspect]
     Indication: BEHCET^S SYNDROME
     Route: 042
     Dates: start: 20070308
  17. COLCHICINE [Suspect]
     Indication: BEHCET^S SYNDROME
     Route: 048
     Dates: start: 20051014, end: 20060128
  18. COLCHICINE [Suspect]
     Indication: BEHCET^S SYNDROME
     Route: 048
     Dates: start: 20060206
  19. COLCHICINE [Suspect]
     Indication: BEHCET^S SYNDROME
     Route: 048
     Dates: start: 20060129, end: 20080228
  20. PREDNISOLONE [Suspect]
     Indication: BEHCET^S SYNDROME
     Route: 048
     Dates: start: 20060819, end: 20061012
  21. PREDNISOLONE [Suspect]
     Indication: BEHCET^S SYNDROME
     Route: 048
     Dates: start: 20061013, end: 20070615
  22. PREDNISOLONE [Suspect]
     Indication: BEHCET^S SYNDROME
     Route: 048
     Dates: start: 20070616, end: 20070906
  23. PREDNISOLONE [Suspect]
     Indication: BEHCET^S SYNDROME
     Route: 048
     Dates: start: 20070907, end: 20071101
  24. PREDNISOLONE [Suspect]
     Indication: BEHCET^S SYNDROME
     Route: 048
     Dates: start: 20071102, end: 20080228
  25. PREDNISOLONE [Suspect]
     Indication: BEHCET^S SYNDROME
     Route: 048
     Dates: start: 20080229, end: 20090328
  26. PREDNISOLONE [Suspect]
     Indication: BEHCET^S SYNDROME
     Route: 048
     Dates: start: 20080425, end: 20080522
  27. PREDNISOLONE [Suspect]
     Indication: BEHCET^S SYNDROME
     Route: 048
     Dates: start: 20080329, end: 20080424
  28. MYDRIN-P [Concomitant]
     Indication: BEHCET^S SYNDROME
     Dosage: once daily for both eyes
     Route: 031
     Dates: start: 20080104
  29. ROCALTROL [Concomitant]
     Indication: OSTEOPOROSIS
     Route: 048
  30. LENDORMIN [Concomitant]
     Indication: INSOMNIA
     Route: 048
  31. LAC-B [Concomitant]
     Indication: DIARRHOEA
     Route: 048
  32. TAKEPRON [Concomitant]
     Indication: GASTROOESOPHAGEAL REFLUX DISEASE
     Route: 048
  33. GASMOTIN [Concomitant]
     Indication: GASTROOESOPHAGEAL REFLUX DISEASE
     Route: 048
  34. ULCERLMIN [Concomitant]
     Indication: GASTROOESOPHAGEAL REFLUX DISEASE
     Route: 048
  35. CRAVIT [Concomitant]
     Indication: SEASONAL ALLERGY
     Route: 031
  36. DICLOD [Concomitant]
     Indication: SEASONAL ALLERGY
     Route: 031
  37. RINDERON A [Concomitant]
     Indication: SEASONAL ALLERGY
     Route: 031
  38. SANCOBA [Concomitant]
     Indication: SEASONAL ALLERGY
     Route: 031
  39. EBASTEL [Concomitant]
     Indication: SEASONAL ALLERGY
     Route: 048
  40. KENALOG [Concomitant]
     Indication: BEHCET^S SYNDROME
  41. ISODINE [Concomitant]
     Indication: BEHCET^S SYNDROME
  42. UREPEARL [Concomitant]
     Indication: DRY SKIN
  43. POLARAMINE (DEXCHLORPHENIRAMINE MALEATE) [Concomitant]
     Indication: PROPHYLAXIS
     Route: 048
     Dates: start: 20080522, end: 20080522
  44. POLARAMINE (DEXCHLORPHENIRAMINE MALEATE) [Concomitant]
     Indication: PROPHYLAXIS
     Route: 048
     Dates: start: 20080328, end: 20080328
  45. POLARAMINE (DEXCHLORPHENIRAMINE MALEATE) [Concomitant]
     Indication: PROPHYLAXIS
     Route: 048
     Dates: start: 20080717, end: 20080717
  46. POLARAMINE (DEXCHLORPHENIRAMINE MALEATE) [Concomitant]
     Indication: PROPHYLAXIS
     Route: 048
     Dates: start: 20090305, end: 20090305
  47. POLARAMINE (DEXCHLORPHENIRAMINE MALEATE) [Concomitant]
     Indication: PROPHYLAXIS
     Route: 048
     Dates: start: 20080911, end: 20080911
  48. POLARAMINE (DEXCHLORPHENIRAMINE MALEATE) [Concomitant]
     Indication: PROPHYLAXIS
     Route: 048
     Dates: start: 20081106, end: 20081106
  49. POLARAMINE (DEXCHLORPHENIRAMINE MALEATE) [Concomitant]
     Indication: PROPHYLAXIS
     Route: 048
     Dates: start: 20090108, end: 20090108
  50. RINDERON [Concomitant]
     Indication: BEHCET^S SYNDROME
     Dosage: both eyes
     Route: 031
     Dates: start: 20080404, end: 20080522
  51. RINDERON [Concomitant]
     Indication: BEHCET^S SYNDROME
     Dosage: two times a day for right eye and four times for left eye
     Route: 031
     Dates: start: 20080718, end: 20080813
  52. RINDERON [Concomitant]
     Indication: BEHCET^S SYNDROME
     Dosage: both eyes
     Route: 031
     Dates: start: 20080523, end: 20080717
  53. RINDERON [Concomitant]
     Indication: BEHCET^S SYNDROME
     Dosage: two times a day for both eyes
     Route: 031
     Dates: start: 20080814
  54. SOLUCORTEF [Concomitant]
     Indication: PROPHYLAXIS
     Route: 065
     Dates: start: 20090305, end: 20090305
  55. SOLUCORTEF [Concomitant]
     Indication: PROPHYLAXIS
     Route: 065
     Dates: start: 20090108, end: 20090108
  56. SOLUCORTEF [Concomitant]
     Indication: PROPHYLAXIS
     Route: 065
     Dates: start: 20081106, end: 20081106
  57. MYSLEE [Concomitant]
     Indication: INSOMNIA
     Route: 048
  58. GASTER [Concomitant]
     Indication: GASTROOESOPHAGEAL REFLUX DISEASE
     Route: 048
  59. LEVOFLOXACIN [Concomitant]
     Indication: PHARYNGITIS
     Route: 048
     Dates: start: 20090512, end: 20090517
  60. LOXOPROFEN [Concomitant]
     Indication: PRODUCT USED FOR UNKNOWN INDICATION
     Route: 048
     Dates: start: 20090518
  61. GASTER [Concomitant]
     Route: 048
     Dates: start: 20090518

REACTIONS (9)
  - Cataract [Unknown]
  - Cytomegalovirus infection [Recovering/Resolving]
  - Antinuclear antibody increased [Unknown]
  - DNA antibody positive [Not Recovered/Not Resolved]
  - Blood creatine phosphokinase increased [Recovered/Resolved]
  - Hepatic function abnormal [Recovering/Resolving]
  - Gingivitis [Recovered/Resolved]
  - Urticaria [Recovered/Resolved]
  - Infusion related reaction [Recovered/Resolved]
